FAERS Safety Report 7595925-2 (Version None)
Quarter: 2011Q3

REPORT INFORMATION
  Report Type: 
  Country: None (occurrence: None)
  Receive Date: 20110707
  Receipt Date: 20110706
  Transmission Date: 20111222
  Serious: Yes (Other)
  Sender: FDA-Public Use
  Company Number: CHPA2011US08894

PATIENT
  Age: 56 Year
  Sex: Female

DRUGS (1)
  1. PHENYLEPHRINE HCL [Suspect]
     Indication: SINUS DISORDER
     Dosage: UNK, 5-6 TIMES DAILY
     Route: 045

REACTIONS (2)
  - INCORRECT DRUG ADMINISTRATION DURATION [None]
  - DRUG DEPENDENCE [None]
